FAERS Safety Report 16757975 (Version 1)
Quarter: 2020Q3

REPORT INFORMATION
  Report Type: Spontaneous
  Country: US (occurrence: US)
  Receive Date: 20190830
  Receipt Date: 20190830
  Transmission Date: 20201105
  Serious: Yes (Death, Hospitalization, Other)
  Sender: FDA-Public Use
  Company Number: US-SA-2019SA240751

PATIENT
  Age: 41 Year
  Sex: Female

DRUGS (3)
  1. DIPHENHYDRAMINE. [Suspect]
     Active Substance: DIPHENHYDRAMINE
     Indication: SUICIDE ATTEMPT
     Dosage: UNK UNK, TOTAL(UNKNOWN QUANTITY)
     Route: 048
  2. IBUPROFEN. [Suspect]
     Active Substance: IBUPROFEN
     Indication: SUICIDE ATTEMPT
     Dosage: UNK UNK, TOTAL(UNKNOWN QUANTITY)
     Route: 048
  3. FERROUS SULFATE. [Suspect]
     Active Substance: FERROUS SULFATE
     Indication: SUICIDE ATTEMPT
     Dosage: UNKNOWN QUANTITY
     Route: 048

REACTIONS (15)
  - Acute hepatic failure [Fatal]
  - Tachycardia [Fatal]
  - Lethargy [Fatal]
  - Hypoxia [Fatal]
  - Condition aggravated [Fatal]
  - Blood iron increased [Fatal]
  - Intentional overdose [Fatal]
  - Acute respiratory distress syndrome [Fatal]
  - Disseminated intravascular coagulation [Fatal]
  - Shock [Fatal]
  - Oxygen saturation decreased [Fatal]
  - Toxicity to various agents [Fatal]
  - Hypotension [Fatal]
  - Circulatory collapse [Fatal]
  - Vital functions abnormal [Fatal]
